FAERS Safety Report 10552696 (Version 2)
Quarter: 2014Q4

REPORT INFORMATION
  Report Type: Spontaneous
  Country: JP (occurrence: JP)
  Receive Date: 20141029
  Receipt Date: 20141029
  Transmission Date: 20150529
  Serious: Yes (Other)
  Sender: FDA-Public Use
  Company Number: JP-TEVA-513810USA

PATIENT
  Age: 77 Year
  Sex: Female

DRUGS (1)
  1. BENDAMUSTINE HYDROCHLORIDE [Suspect]
     Active Substance: BENDAMUSTINE HYDROCHLORIDE
     Indication: PRODUCT USED FOR UNKNOWN INDICATION
     Route: 042
     Dates: start: 20141001, end: 20141002

REACTIONS (1)
  - Injection site thrombosis [Not Recovered/Not Resolved]

NARRATIVE: CASE EVENT DATE: 20141001
